FAERS Safety Report 20520540 (Version 31)
Quarter: 2025Q3

REPORT INFORMATION
  Report Type: Report from Study
  Country: CA (occurrence: CA)
  Receive Date: 20220225
  Receipt Date: 20250930
  Transmission Date: 20251020
  Serious: Yes (Hospitalization, Other)
  Sender: TAKEDA
  Company Number: CA-TAKEDA-2022TUS006938

PATIENT
  Age: 65 Year
  Sex: Male

DRUGS (29)
  1. TEDUGLUTIDE [Suspect]
     Active Substance: TEDUGLUTIDE
     Indication: Short-bowel syndrome
     Dosage: 3.7 MILLIGRAM, QD
     Dates: start: 20220127
  2. TEDUGLUTIDE [Suspect]
     Active Substance: TEDUGLUTIDE
     Dosage: 3.1 MILLIGRAM, QD
  3. TEDUGLUTIDE [Suspect]
     Active Substance: TEDUGLUTIDE
     Dosage: 3.7 MILLIGRAM, QD
  4. TEDUGLUTIDE [Suspect]
     Active Substance: TEDUGLUTIDE
     Dosage: 3.7 MILLIGRAM, QD
  5. TEDUGLUTIDE [Suspect]
     Active Substance: TEDUGLUTIDE
     Dosage: 3.7 MILLIGRAM, QD
  6. TEDUGLUTIDE [Suspect]
     Active Substance: TEDUGLUTIDE
     Dosage: 1.8 MILLIGRAM, QD
  7. TEDUGLUTIDE [Suspect]
     Active Substance: TEDUGLUTIDE
     Dosage: 1.8 MILLIGRAM, QD
  8. IDACIO [Suspect]
     Active Substance: ADALIMUMAB-AACF
     Indication: Product used for unknown indication
  9. LEVOTHYROXINE [Concomitant]
     Active Substance: LEVOTHYROXINE
     Dosage: 350 MICROGRAM, QD
  10. LEVOTHYROXINE [Concomitant]
     Active Substance: LEVOTHYROXINE
     Dosage: 325 MICROGRAM, QD
  11. ENTYVIO [Concomitant]
     Active Substance: VEDOLIZUMAB
  12. FOLIC ACID [Concomitant]
     Active Substance: FOLIC ACID
     Dosage: 5 MILLIGRAM, QD
  13. MAGNESIUM [Concomitant]
     Active Substance: MAGNESIUM
     Dosage: 20 MILLIGRAM, QD
  14. VITAMIN B12 [Concomitant]
     Active Substance: CYANOCOBALAMIN
     Dosage: UNK UNK, 1/WEEK
  15. VITAMIN B12 [Concomitant]
     Active Substance: CYANOCOBALAMIN
     Dosage: UNK UNK, MONTHLY
  16. CALCIUM [Concomitant]
     Active Substance: CALCIUM
  17. IMURAN [Concomitant]
     Active Substance: AZATHIOPRINE
     Dosage: 50 MILLIGRAM, QD
  18. CALCITRIOL [Concomitant]
     Active Substance: CALCITRIOL
     Dosage: 25 MICROGRAM, QD
  19. ARANESP [Concomitant]
     Active Substance: DARBEPOETIN ALFA
     Dosage: 30 MILLIGRAM, Q2WEEKS
  20. HUMIRA [Concomitant]
     Active Substance: ADALIMUMAB
     Dosage: UNK, BID
  21. HUMIRA [Concomitant]
     Active Substance: ADALIMUMAB
     Dosage: UNK, Q2WEEKS
  22. FLUCONAZOLE [Concomitant]
     Active Substance: FLUCONAZOLE
  23. TPN [Concomitant]
     Active Substance: AMINO ACIDS\DEXTROSE\ELECTROLYTES NOS\SOYBEAN OIL
  24. TPN [Concomitant]
     Active Substance: AMINO ACIDS\DEXTROSE\ELECTROLYTES NOS\SOYBEAN OIL
     Dosage: 3000 MILLILITER, QD
     Dates: start: 202105
  25. TPN [Concomitant]
     Active Substance: AMINO ACIDS\DEXTROSE\ELECTROLYTES NOS\SOYBEAN OIL
     Dosage: 2500 MILLILITER, QD
     Dates: start: 202204
  26. TPN [Concomitant]
     Active Substance: AMINO ACIDS\DEXTROSE\ELECTROLYTES NOS\SOYBEAN OIL
     Dosage: 2350 MILLILITER, QD
     Dates: start: 20220920
  27. TPN [Concomitant]
     Active Substance: AMINO ACIDS\DEXTROSE\ELECTROLYTES NOS\SOYBEAN OIL
     Dosage: 2000 MILLILITER, QD
     Dates: start: 20230317
  28. TPN [Concomitant]
     Active Substance: AMINO ACIDS\DEXTROSE\ELECTROLYTES NOS\SOYBEAN OIL
     Dosage: 1000 MILLILITER, QD
     Dates: start: 20240120
  29. CALCIUM CHLORIDE\POTASSIUM CHLORIDE\SODIUM LACTATE [Concomitant]
     Active Substance: CALCIUM CHLORIDE\POTASSIUM CHLORIDE\SODIUM LACTATE

REACTIONS (41)
  - Diarrhoea [Not Recovered/Not Resolved]
  - Vascular device infection [Unknown]
  - Fungal infection [Recovered/Resolved]
  - Renal injury [Recovering/Resolving]
  - Malaise [Unknown]
  - Metabolic acidosis [Not Recovered/Not Resolved]
  - Crohn^s disease [Unknown]
  - Fungal pharyngitis [Not Recovered/Not Resolved]
  - Nephrolithiasis [Unknown]
  - Nephropathy [Unknown]
  - Abdominal discomfort [Recovered/Resolved]
  - Localised infection [Unknown]
  - Gastrointestinal disorder [Unknown]
  - Hyperthyroidism [Unknown]
  - Renal impairment [Unknown]
  - Pain in extremity [Unknown]
  - Colorectal cancer [Unknown]
  - Anal stenosis [Unknown]
  - Blood pressure increased [Not Recovered/Not Resolved]
  - Candida infection [Recovered/Resolved]
  - Abnormal faeces [Recovering/Resolving]
  - Weight decreased [Unknown]
  - Product use issue [Unknown]
  - Weight increased [Unknown]
  - Family stress [Unknown]
  - Body temperature abnormal [Not Recovered/Not Resolved]
  - Blood iron decreased [Unknown]
  - Dysphagia [Not Recovered/Not Resolved]
  - Tooth disorder [Not Recovered/Not Resolved]
  - Product colour issue [Unknown]
  - Incorrect dose administered [Unknown]
  - Wrong technique in product usage process [Unknown]
  - Renal disorder [Recovering/Resolving]
  - Drug ineffective [Unknown]
  - Pharyngitis [Not Recovered/Not Resolved]
  - Heart rate increased [Not Recovered/Not Resolved]
  - Nasopharyngitis [Recovering/Resolving]
  - Cough [Recovering/Resolving]
  - Product dose omission in error [Not Recovered/Not Resolved]
  - Abdominal pain [Recovering/Resolving]
  - Large intestine polyp [Unknown]

NARRATIVE: CASE EVENT DATE: 20220128
